FAERS Safety Report 5376405-1 (Version None)
Quarter: 2007Q3

REPORT INFORMATION
  Report Type: 
  Country: None (occurrence: None)
  Receive Date: 20070702
  Receipt Date: 20070620
  Transmission Date: 20080115
  Serious: Yes (Death, Hospitalization, Other)
  Sender: FDA-Public Use
  Company Number: DE-PFIZER INC-2007051138

PATIENT
  Age: 78 Year
  Sex: Female

DRUGS (1)
  1. ANTITHYMOCYTE IMMUNOGLOBULIN SOLUTION, STERILE [Suspect]
     Indication: CHRONIC INFLAMMATORY DEMYELINATING POLYRADICULONEUROPATHY
     Route: 042

REACTIONS (4)
  - CARDIAC ARREST [None]
  - GUILLAIN-BARRE SYNDROME [None]
  - PNEUMONIA STAPHYLOCOCCAL [None]
  - SEPSIS [None]
